FAERS Safety Report 22344459 (Version 1)
Quarter: 2023Q2

REPORT INFORMATION
  Report Type: Report from Study
  Country: US (occurrence: US)
  Receive Date: 20230519
  Receipt Date: 20230519
  Transmission Date: 20230722
  Serious: Yes (Hospitalization)
  Sender: FDA-Public Use
  Company Number: US-PFIZER INC-US-GBT-018294

PATIENT
  Age: 43 Year
  Sex: Female
  Weight: 63 kg

DRUGS (8)
  1. OXBRYTA [Suspect]
     Active Substance: VOXELOTOR
     Indication: Sickle cell disease
     Dosage: 500 MG, 1X/DAY
     Route: 048
     Dates: start: 202211, end: 202211
  2. OXBRYTA [Suspect]
     Active Substance: VOXELOTOR
     Dosage: 1500 MG, 1X/DAY
     Route: 048
     Dates: start: 202211, end: 202211
  3. OXBRYTA [Suspect]
     Active Substance: VOXELOTOR
     Dosage: 500 MG, 1X/DAY
     Route: 048
     Dates: start: 20221122, end: 202302
  4. FOLIC ACID [Concomitant]
     Active Substance: FOLIC ACID
     Dosage: UNK
  5. XARELTO [Concomitant]
     Active Substance: RIVAROXABAN
     Dosage: UNK
  6. MULTIVITAMIN [ASCORBIC ACID;NICOTINAMIDE;RETINOL;RIBOFLAVIN;THIAMINE;V [Concomitant]
     Dosage: UNK
  7. MS CONTIN [Concomitant]
     Active Substance: MORPHINE SULFATE
     Dosage: UNK
  8. OXYCODONE [Concomitant]
     Active Substance: OXYCODONE
     Dosage: UNK

REACTIONS (9)
  - Drug ineffective [Unknown]
  - Off label use [Unknown]
  - Migraine [Not Recovered/Not Resolved]
  - Somnolence [Recovering/Resolving]
  - Headache [Not Recovered/Not Resolved]
  - Nausea [Not Recovered/Not Resolved]
  - Chest pain [Not Recovered/Not Resolved]
  - Feeling abnormal [Unknown]
  - Malaise [Unknown]

NARRATIVE: CASE EVENT DATE: 20221101
